FAERS Safety Report 17671564 (Version 3)
Quarter: 2020Q3

REPORT INFORMATION
  Report Type: Report from Study
  Country: US (occurrence: US)
  Receive Date: 20200415
  Receipt Date: 20200911
  Transmission Date: 20201102
  Serious: Yes (Hospitalization)
  Sender: FDA-Public Use
  Company Number: US-ROCHE-2344214

PATIENT
  Age: 56 Year
  Sex: Male
  Weight: 88.2 kg

DRUGS (22)
  1. VENETOCLAX. [Suspect]
     Active Substance: VENETOCLAX
     Dosage: DAYS 15?21, CYCLE 3
     Route: 048
     Dates: start: 20190415
  2. IBRUTINIB [Suspect]
     Active Substance: IBRUTINIB
     Indication: CHRONIC LYMPHOCYTIC LEUKAEMIA
     Dosage: ON DAYS 1?28, CYCLES 1?19
     Route: 048
     Dates: start: 20190415
  3. ZANTAC [Concomitant]
     Active Substance: RANITIDINE HYDROCHLORIDE
     Route: 048
  4. VENETOCLAX. [Suspect]
     Active Substance: VENETOCLAX
     Indication: CHRONIC LYMPHOCYTIC LEUKAEMIA
     Dosage: DAYS 1?7 CYCLE 3
     Route: 048
     Dates: start: 20190415
  5. VENETOCLAX. [Suspect]
     Active Substance: VENETOCLAX
     Dosage: DAYS 1?28, CYCLES 4?14?TOTAL DOSE ADMINISTERED THIS COURSE: 400MG, LAST ADMINISTERED DATE:25/MAR/202
     Route: 048
     Dates: start: 20190415
  6. IBRUTINIB [Suspect]
     Active Substance: IBRUTINIB
     Dosage: TOTAL DOSE ADMINISTERED THIS COURSE: 420MG, LAST ADMINISTERED DATE: 25/MAR/2020
     Route: 048
     Dates: start: 20190513
  7. ACYCLOVIR. [Concomitant]
     Active Substance: ACYCLOVIR
     Route: 048
  8. BACTRIM DS [Concomitant]
     Active Substance: SULFAMETHOXAZOLE\TRIMETHOPRIM
     Dosage: 1(800?160 MG) TABLET
     Route: 048
  9. ACETAMINOPHEN. [Concomitant]
     Active Substance: ACETAMINOPHEN
     Dosage: 2 TABLET (325 MG) ORAL
     Route: 048
  10. OBINUTUZUMAB. [Suspect]
     Active Substance: OBINUTUZUMAB
     Indication: CHRONIC LYMPHOCYTIC LEUKAEMIA
     Dosage: DAY 1, CYCLE 1
     Route: 042
     Dates: start: 20190415
  11. OBINUTUZUMAB. [Suspect]
     Active Substance: OBINUTUZUMAB
     Dosage: DAY 8, CYCLE 1
     Route: 042
  12. AZITHROMYCIN ANHYDROUS. [Concomitant]
     Active Substance: AZITHROMYCIN ANHYDROUS
     Dosage: ON DAY 1 AND 250 MG ON SUBSEQUENT 4 DAYS
  13. PLAQUENIL [Concomitant]
     Active Substance: HYDROXYCHLOROQUINE SULFATE
     Dosage: 400 MG BID ON DAY 1 AND 200 MG BID FOR SUBSEQUENT 4 DAYS
  14. OBINUTUZUMAB. [Suspect]
     Active Substance: OBINUTUZUMAB
     Dosage: DAY 1, CYCLES 2?6 TOTAL DOSE ADMINISTERED THIS COURSE: 1000 MG, LAST ADMINISTERED DATE: 01/OCT/2019
     Route: 042
  15. TOCILIZUMAB. [Concomitant]
     Active Substance: TOCILIZUMAB
     Route: 065
     Dates: start: 20200404
  16. OBINUTUZUMAB. [Suspect]
     Active Substance: OBINUTUZUMAB
     Dosage: DAY 2, CYCLE 1
     Route: 042
  17. OBINUTUZUMAB. [Suspect]
     Active Substance: OBINUTUZUMAB
     Dosage: DAY 15, CYCLE 1
     Route: 042
  18. ALLOPURINOL. [Concomitant]
     Active Substance: ALLOPURINOL
  19. OBINUTUZUMAB. [Suspect]
     Active Substance: OBINUTUZUMAB
     Dosage: DOSE INTERRUPTED AFTER A GRADE 2 INFUSION REACTION. HE RESTARTED TREATMENT ON 19/APR/2019, TOTAL DOS
     Route: 042
     Dates: start: 20190415, end: 20190415
  20. VENETOCLAX. [Suspect]
     Active Substance: VENETOCLAX
     Dosage: DAYS 8?14, CYCLE 3
     Route: 048
     Dates: start: 20190415
  21. VENETOCLAX. [Suspect]
     Active Substance: VENETOCLAX
     Dosage: DAYS 22?28, CYCLE 3
     Route: 048
     Dates: start: 20190415
  22. ADVIL [Concomitant]
     Active Substance: IBUPROFEN
     Route: 048

REACTIONS (6)
  - Blood lactate dehydrogenase increased [Unknown]
  - Hyperphosphataemia [Unknown]
  - Hyperkalaemia [Recovered/Resolved]
  - Leukocytosis [Unknown]
  - COVID-19 [Recovered/Resolved]
  - Infusion related reaction [Unknown]

NARRATIVE: CASE EVENT DATE: 20190415
